FAERS Safety Report 22330992 (Version 1)
Quarter: 2023Q2

REPORT INFORMATION
  Report Type: Spontaneous
  Country: US (occurrence: None)
  Receive Date: 20230515
  Receipt Date: 20230515
  Transmission Date: 20230722
  Serious: Yes (Other)
  Sender: FDA-Public Use
  Company Number: None

PATIENT
  Age: 48 Year
  Sex: Female
  Weight: 96.8 kg

DRUGS (8)
  1. INFED [Suspect]
     Active Substance: IRON DEXTRAN
     Indication: Iron deficiency anaemia
     Dosage: FREQUENCY : ONCE;?
     Route: 042
     Dates: start: 20221214, end: 20230426
  2. Albuterol Sulfate HFA 90 mcg/actuation aerosol inhaler - 2 puffs prn [Concomitant]
  3. Buspirone 5 mg tablet PO twice daily [Concomitant]
  4. Buspirone 7.5 mg tablet PO twice daily [Concomitant]
  5. Cephalexin 500 mg PO three times daily [Concomitant]
  6. Cholecalciferol 1,250 mcg PO once weekly [Concomitant]
  7. Montelukast 10 mg PO once daily [Concomitant]
  8. Omeprazole 40 mg ER PO once daily [Concomitant]

REACTIONS (5)
  - Pulmonary congestion [None]
  - Blood pressure increased [None]
  - Infusion related reaction [None]
  - Nasal pruritus [None]
  - Throat irritation [None]

NARRATIVE: CASE EVENT DATE: 20230426
